FAERS Safety Report 16841108 (Version 1)
Quarter: 2019Q3

REPORT INFORMATION
  Report Type: Spontaneous
  Country: US (occurrence: US)
  Receive Date: 20190923
  Receipt Date: 20190923
  Transmission Date: 20191005
  Serious: No
  Sender: FDA-Public Use
  Company Number: US-SA-2019SA260818

PATIENT
  Age: 23 Year
  Sex: Female

DRUGS (2)
  1. MIRENA [Concomitant]
     Active Substance: LEVONORGESTREL
  2. DUPIXENT [Suspect]
     Active Substance: DUPILUMAB
     Dosage: 300 MG, QOW

REACTIONS (1)
  - Injection site pain [Not Recovered/Not Resolved]
